FAERS Safety Report 7193622-9 (Version None)
Quarter: 2010Q4

REPORT INFORMATION
  Report Type: 
  Country: None (occurrence: None)
  Receive Date: 20101223
  Receipt Date: 20100908
  Transmission Date: 20110411
  Serious: No
  Sender: FDA-Public Use
  Company Number: US-AMGEN-KDL436995

PATIENT

DRUGS (6)
  1. ENBREL [Suspect]
     Indication: RHEUMATOID ARTHRITIS
  2. ADALIMUMAB [Concomitant]
     Indication: RHEUMATOID ARTHRITIS
     Dosage: 40 MG, Q2WK
     Dates: start: 20091101, end: 20100701
  3. METHOTREXATE [Concomitant]
     Dosage: UNK UNK, UNK
     Dates: start: 20091101
  4. FOLIC ACID [Concomitant]
  5. OMEPRAZOLE [Concomitant]
  6. NAPROXEN [Concomitant]

REACTIONS (4)
  - DRUG INEFFECTIVE [None]
  - INFLAMMATORY MARKER INCREASED [None]
  - INJECTION SITE PAIN [None]
  - RHEUMATOID ARTHRITIS [None]
